FAERS Safety Report 5487062-8 (Version None)
Quarter: 2007Q4

REPORT INFORMATION
  Report Type: 
  Country: None (occurrence: None)
  Receive Date: 20071016
  Receipt Date: 20071010
  Transmission Date: 20080405
  Serious: Yes (Other)
  Sender: FDA-Public Use
  Company Number: US-ASTRAZENECA-2007UW23462

PATIENT
  Age: 63 Year
  Sex: Male

DRUGS (8)
  1. LISINOPRIL [Suspect]
     Route: 048
  2. PACERONE [Suspect]
     Indication: VENTRICULAR TACHYCARDIA
     Route: 048
     Dates: start: 20061201
  3. PACERONE [Suspect]
     Route: 048
  4. DIGOXIN [Concomitant]
  5. METOPROLOL [Concomitant]
  6. FUROSEMIDE [Concomitant]
  7. TRIAZOLAM [Concomitant]
  8. WARFARIN SODIUM [Concomitant]

REACTIONS (5)
  - BALANCE DISORDER [None]
  - BLOOD THYROID STIMULATING HORMONE INCREASED [None]
  - CHROMATURIA [None]
  - FALL [None]
  - TREMOR [None]
